FAERS Safety Report 7882517-0 (Version None)
Quarter: 2011Q4

REPORT INFORMATION
  Report Type: 
  Country: None (occurrence: None)
  Receive Date: 20111101
  Receipt Date: 20110616
  Transmission Date: 20120403
  Serious: No
  Sender: FDA-Public Use
  Company Number: US-AMGEN-USASP2011030829

PATIENT
  Sex: Female

DRUGS (1)
  1. ENBREL [Suspect]
     Indication: RHEUMATOID ARTHRITIS
     Dosage: 50 MG, QWK
     Dates: start: 20101201, end: 20110602

REACTIONS (6)
  - OROPHARYNGEAL PAIN [None]
  - COUGH [None]
  - CHILLS [None]
  - INCREASED UPPER AIRWAY SECRETION [None]
  - PYREXIA [None]
  - INFLUENZA [None]
